FAERS Safety Report 8339472-9 (Version None)
Quarter: 2012Q2

REPORT INFORMATION
  Report Type: 
  Country: None (occurrence: None)
  Receive Date: 20120507
  Receipt Date: 20120425
  Transmission Date: 20120825
  Serious: Yes (Hospitalization)
  Sender: FDA-Public Use
  Company Number: PHEH2012US007336

PATIENT
  Sex: Female
  Weight: 59 kg

DRUGS (1)
  1. VIVELLE-DOT [Suspect]
     Indication: PREMATURE MENOPAUSE
     Dosage: 0.025 MG, UNK
     Route: 062
     Dates: start: 20111201, end: 20120401

REACTIONS (2)
  - ALOPECIA [None]
  - TYPE 1 DIABETES MELLITUS [None]
